FAERS Safety Report 5345561-3 (Version None)
Quarter: 2007Q2

REPORT INFORMATION
  Report Type: 
  Country: None (occurrence: None)
  Receive Date: 20070601
  Receipt Date: 20070601
  Transmission Date: 20071010
  Serious: Yes (Hospitalization)
  Sender: FDA-Public Use
  Company Number: None

PATIENT
  Sex: Male
  Weight: 79 kg

DRUGS (2)
  1. MELPHALAN [Suspect]
     Dosage: 398 MG
     Dates: end: 20070407
  2. CYCLOPHOSPHAMIDE [Suspect]
     Dosage: 8000 MG
     Dates: end: 20070208

REACTIONS (3)
  - BLOOD POTASSIUM DECREASED [None]
  - FEBRILE NEUTROPENIA [None]
  - MUCOSAL INFLAMMATION [None]
